FAERS Safety Report 19582529 (Version 1)
Quarter: 2021Q3

REPORT INFORMATION
  Report Type: Spontaneous
  Country: US (occurrence: US)
  Receive Date: 20210719
  Receipt Date: 20210719
  Transmission Date: 20211014
  Serious: No
  Sender: FDA-Public Use
  Company Number: US-FRESENIUS MEDICAL CARE RENAL THERAPIES GROUP-FMC-2105-000656

PATIENT
  Age: 56 Year
  Sex: Male
  Weight: 82 kg

DRUGS (17)
  1. DELFLEX WITH DEXTROSE 1.5% LOW MAGNESIUM LOW CALCIUM [Suspect]
     Active Substance: CALCIUM CHLORIDE\DEXTROSE\MAGNESIUM CHLORIDE\SODIUM CHLORIDE\SODIUM LACTATE
     Indication: END STAGE RENAL DISEASE
     Dosage: FILL VOLUME 2000 ML (CURRENTLY 1200 ML), FILLS 4, LAST FILL (ICODEXTRIN) 2000 ML (CURRENTLY ON HOLD)
     Route: 033
  2. LACTULOSE. [Concomitant]
     Active Substance: LACTULOSE
  3. VELPHORO [Concomitant]
     Active Substance: SUCROFERRIC OXYHYDROXIDE
  4. AMLODIPINE [Concomitant]
     Active Substance: AMLODIPINE BESYLATE
  5. GLIPIZIDE. [Concomitant]
     Active Substance: GLIPIZIDE
  6. RENAPLEX D [Concomitant]
  7. DELFLEX WITH DEXTROSE 2.5% LOW MAGNESIUM LOW CALCIUM [Suspect]
     Active Substance: CALCIUM CHLORIDE\DEXTROSE\MAGNESIUM CHLORIDE\SODIUM CHLORIDE\SODIUM LACTATE
     Indication: END STAGE RENAL DISEASE
     Dosage: FILL VOLUME 2000 ML (CURRENTLY 1200 ML), FILLS 4, LAST FILL (ICODEXTRIN) 2000 ML (CURRENTLY ON HOLD)
     Route: 033
  8. DELFLEX WITH DEXTROSE 4.25% LOW MAGNESIUM LOW CALCIUM [Suspect]
     Active Substance: CALCIUM CHLORIDE\DEXTROSE\MAGNESIUM CHLORIDE\SODIUM CHLORIDE\SODIUM LACTATE
     Indication: END STAGE RENAL DISEASE
     Dosage: FILL VOLUME 2000 ML (CURRENTLY 1200 ML), FILLS 4, LAST FILL (ICODEXTRIN) 2000 ML (CURRENTLY ON HOLD)
     Route: 033
  9. TORSEMIDE. [Concomitant]
     Active Substance: TORSEMIDE
  10. COLACE [Concomitant]
     Active Substance: DOCUSATE SODIUM
  11. HEPARIN [Concomitant]
     Active Substance: HEPARIN SODIUM
  12. GENTAMYCIN [Concomitant]
     Active Substance: GENTAMICIN
  13. RENVELA [Concomitant]
     Active Substance: SEVELAMER CARBONATE
  14. LISINOPRIL. [Concomitant]
     Active Substance: LISINOPRIL
  15. CALCITRIOL. [Concomitant]
     Active Substance: CALCITRIOL
  16. CARVEDILOL. [Concomitant]
     Active Substance: CARVEDILOL
  17. CITALOPRAM [Concomitant]
     Active Substance: CITALOPRAM HYDROBROMIDE

REACTIONS (1)
  - Incisional hernia [Unknown]
